FAERS Safety Report 23814571 (Version 1)
Quarter: 2024Q2

REPORT INFORMATION
  Report Type: Spontaneous
  Country: US (occurrence: None)
  Receive Date: 20240502
  Receipt Date: 20240502
  Transmission Date: 20240716
  Serious: Yes (Hospitalization)
  Sender: FDA-Public Use
  Company Number: None

PATIENT
  Age: 76 Year
  Sex: Male

DRUGS (11)
  1. TASIGNA [Suspect]
     Active Substance: NILOTINIB
     Indication: Acute lymphocytic leukaemia
     Dosage: FREQ: TAKE 1 CAPSULE (200 MG) BY MOUTH DAILY WITH A GLASS OF WATER. NO FOOD 2 HOURS BEFORE OR 1 HOUR
     Dates: start: 20190328
  2. ATIVAN [Concomitant]
     Active Substance: LORAZEPAM
  3. CELEXA [Concomitant]
     Active Substance: CITALOPRAM HYDROBROMIDE
  4. ACETAMINOPHEN\HYDROCODONE [Concomitant]
     Active Substance: ACETAMINOPHEN\HYDROCODONE
  5. A-HYDROCORT [Concomitant]
     Active Substance: HYDROCORTISONE SODIUM SUCCINATE
  6. LEVOFLOXACIN [Concomitant]
     Active Substance: LEVOFLOXACIN
  7. POTASSIJM [Concomitant]
  8. PANTOPRAZOLE [Concomitant]
     Active Substance: PANTOPRAZOLE
  9. SPRYCEL [Concomitant]
     Active Substance: DASATINIB
  10. VFEND [Concomitant]
     Active Substance: VORICONAZOLE
  11. VITAMIN B1 [Concomitant]
     Active Substance: THIAMINE HYDROCHLORIDE

REACTIONS (2)
  - Cerebrovascular accident [None]
  - Therapy interrupted [None]

NARRATIVE: CASE EVENT DATE: 20240423
